FAERS Safety Report 7058457-6 (Version None)
Quarter: 2010Q4

REPORT INFORMATION
  Report Type: 
  Country: None (occurrence: None)
  Receive Date: 20101022
  Receipt Date: 20101014
  Transmission Date: 20110411
  Serious: Yes (Hospitalization)
  Sender: FDA-Public Use
  Company Number: GXKR2010TR11636

PATIENT
  Age: 35 Year
  Sex: Male

DRUGS (2)
  1. RISPERIDONE [Suspect]
     Indication: SCHIZOAFFECTIVE DISORDER
     Dosage: 4 MG/DAY
     Route: 048
  2. LITHIUM [Interacting]
     Indication: MANIA
     Dosage: 450 MG, BID
     Route: 048

REACTIONS (8)
  - DEHYDRATION [None]
  - DRUG INTERACTION [None]
  - LETHARGY [None]
  - MUSCLE RIGIDITY [None]
  - NEUROLEPTIC MALIGNANT SYNDROME [None]
  - PYREXIA [None]
  - SKIN TURGOR DECREASED [None]
  - TONGUE DRY [None]
